FAERS Safety Report 8610799-6 (Version None)
Quarter: 2012Q3

REPORT INFORMATION
  Report Type: 
  Country: None (occurrence: None)
  Receive Date: 20120808
  Receipt Date: 20120724
  Transmission Date: 20120928
  Serious: Yes (Other)
  Sender: FDA-Public Use
  Company Number: FK201202155

PATIENT
  Age: 72 Year
  Sex: Male

DRUGS (2)
  1. CARBOPLATIN [Suspect]
     Indication: SMALL CELL LUNG CANCER STAGE UNSPECIFIED
     Dosage: 300 MG/M2, ON DAY 1
  2. ETOPOSIDE [Suspect]
     Indication: SMALL CELL LUNG CANCER STAGE UNSPECIFIED
     Dosage: 50 MG/M2, ON DAYS 1 AND 3

REACTIONS (4)
  - THROMBOCYTOPENIA [None]
  - HYPOTENSION [None]
  - PNEUMONIA [None]
  - FEBRILE NEUTROPENIA [None]
